FAERS Safety Report 9935772 (Version 1)
Quarter: 2014Q1

REPORT INFORMATION
  Report Type: Spontaneous
  Country: US (occurrence: US)
  Receive Date: 20140228
  Receipt Date: 20140228
  Transmission Date: 20141002
  Serious: No
  Sender: FDA-Public Use
  Company Number: US-AMGEN-USASP2013066929

PATIENT
  Age: 57 Year
  Sex: Female
  Weight: 102.4 kg

DRUGS (10)
  1. ENBREL [Suspect]
     Indication: PRODUCT USED FOR UNKNOWN INDICATION
     Dosage: 50 MG, 2 TIMES/WK
     Route: 058
  2. NOVOLOG [Concomitant]
     Dosage: 100/ML
  3. METFORMIN [Concomitant]
     Dosage: 1000 MG, UNK
  4. RAMIPRIL [Concomitant]
     Dosage: 10 MG, UNK
  5. LUVOX [Concomitant]
     Dosage: 100 MG, UNK
  6. VITAMIN D3 [Concomitant]
     Dosage: 2000 UNIT, UNK
  7. ASPIRIN [Concomitant]
     Dosage: 81 MG, UNK
  8. PRAVASTATIN [Concomitant]
     Dosage: 20 MG, UNK
  9. VITAMIN B12                        /00056201/ [Concomitant]
     Dosage: 1000 MUG, UNK
  10. MOTRIN [Concomitant]
     Dosage: 800 MG, UNK

REACTIONS (4)
  - Headache [Unknown]
  - Diarrhoea [Unknown]
  - Injection site pruritus [Unknown]
  - Injection site erythema [Unknown]
